FAERS Safety Report 22172836 (Version 1)
Quarter: 2023Q2

REPORT INFORMATION
  Report Type: Spontaneous
  Country: ES (occurrence: US)
  Receive Date: 20230404
  Receipt Date: 20230404
  Transmission Date: 20230721
  Serious: No
  Sender: FDA-Public Use
  Company Number: ES-VERTEX PHARMACEUTICALS-2023-004718

PATIENT

DRUGS (1)
  1. TRIKAFTA [Suspect]
     Active Substance: ELEXACAFTOR\IVACAFTOR\TEZACAFTOR
     Indication: Cystic fibrosis
     Dosage: UNKNOWN FREQUENCY
     Route: 048

REACTIONS (6)
  - Cognitive disorder [Unknown]
  - Depression [Unknown]
  - Anxiety [Unknown]
  - Brain fog [Unknown]
  - Paranoia [Unknown]
  - Mental disorder [Unknown]
